FAERS Safety Report 8126021-3 (Version None)
Quarter: 2012Q1

REPORT INFORMATION
  Report Type: 
  Country: None (occurrence: None)
  Receive Date: 20120209
  Receipt Date: 20111212
  Transmission Date: 20120608
  Serious: No
  Sender: FDA-Public Use
  Company Number: US-BAUSCH-2011BL008771

PATIENT
  Age: 52 Year
  Sex: Female

DRUGS (2)
  1. LOTEMAX [Suspect]
     Indication: OCULAR HYPERAEMIA
     Route: 047
     Dates: start: 20111208, end: 20111208
  2. LOTEMAX [Suspect]
     Indication: OFF LABEL USE
     Route: 047
     Dates: start: 20111208, end: 20111208

REACTIONS (4)
  - OCULAR HYPERAEMIA [None]
  - LACRIMATION INCREASED [None]
  - EYE SWELLING [None]
  - CONDITION AGGRAVATED [None]
